FAERS Safety Report 20082737 (Version 2)
Quarter: 2022Q1

REPORT INFORMATION
  Report Type: Spontaneous
  Country: US (occurrence: US)
  Receive Date: 20211117
  Receipt Date: 20220321
  Transmission Date: 20220423
  Serious: Yes (Other)
  Sender: FDA-Public Use
  Company Number: US-PFIZER INC-202101282822

PATIENT
  Age: 61 Year
  Sex: Female

DRUGS (2)
  1. EUCRISA [Suspect]
     Active Substance: CRISABOROLE
     Indication: Eyelid rash
     Dosage: 2X/DAY, (APPLY TO RASH ON EYELIDS AND HANDS TWICE DAILY)
     Route: 061
  2. EUCRISA [Suspect]
     Active Substance: CRISABOROLE
     Indication: Rash

REACTIONS (3)
  - Tunnel vision [Unknown]
  - Cerebral disorder [Unknown]
  - Off label use [Unknown]
